FAERS Safety Report 10037061 (Version 1)
Quarter: 2014Q1

REPORT INFORMATION
  Report Type: Spontaneous
  Country: US (occurrence: US)
  Receive Date: 20140326
  Receipt Date: 20140326
  Transmission Date: 20141002
  Serious: No
  Sender: FDA-Public Use
  Company Number: US-B.I. PHARMACEUTICALS,INC./RIDGEFIELD-2014-BI-12277BP

PATIENT
  Age: 12 Year
  Sex: Male

DRUGS (4)
  1. SPIRIVA [Suspect]
     Indication: TRACHEOMALACIA
     Dosage: 18 MCG
     Route: 055
  2. FLOVENT [Concomitant]
     Route: 055
  3. PRILOSEC [Concomitant]
     Route: 048
  4. ZYRTEC [Concomitant]
     Route: 048

REACTIONS (2)
  - Off label use [Unknown]
  - Off label use [Unknown]
